FAERS Safety Report 15121190 (Version 1)
Quarter: 2018Q3

REPORT INFORMATION
  Report Type: Spontaneous
  Country: US (occurrence: US)
  Receive Date: 20180709
  Receipt Date: 20180709
  Transmission Date: 20181010
  Serious: No
  Sender: FDA-Public Use
  Company Number: US-JNJFOC-20180623328

PATIENT
  Age: 74 Year
  Sex: Female
  Weight: 55.79 kg

DRUGS (2)
  1. MENS ROGAINE [Suspect]
     Active Substance: MINOXIDIL
     Route: 061
  2. MENS ROGAINE [Suspect]
     Active Substance: MINOXIDIL
     Indication: ALOPECIA
     Dosage: EITHER MEASURED A FULL CAPFUL OR SOMETIMES JUST SQUIRTED AN UNKNOWN AMOUNT ON HER??HEAD
     Route: 061
     Dates: start: 2018, end: 2018

REACTIONS (4)
  - Product use issue [Unknown]
  - Off label use [Unknown]
  - Wrong technique in product usage process [Unknown]
  - Overdose [Unknown]
